FAERS Safety Report 19463529 (Version 1)
Quarter: 2021Q2

REPORT INFORMATION
  Report Type: Spontaneous
  Country: JP (occurrence: JP)
  Receive Date: 20210625
  Receipt Date: 20210625
  Transmission Date: 20210717
  Serious: Yes (Hospitalization, Other)
  Sender: FDA-Public Use
  Company Number: JP-SA-2021SA209649

PATIENT
  Age: 18 Year
  Sex: Male
  Weight: 53 kg

DRUGS (15)
  1. DILURAN [Suspect]
     Active Substance: ACETAZOLAMIDE
     Dosage: 1000 MG, QD
     Route: 048
     Dates: start: 20060524, end: 20060524
  2. EFFORTIL [Suspect]
     Active Substance: ETILEFRINE HYDROCHLORIDE
     Dosage: 120 MG, QD
     Route: 048
     Dates: start: 20060524, end: 20060524
  3. MIYA?BM [Suspect]
     Active Substance: CLOSTRIDIUM BUTYRICUM SPORES STRAIN M-55
     Dosage: 7U PER DAY
     Route: 048
     Dates: start: 20060524, end: 20060524
  4. TOMIRON [Suspect]
     Active Substance: CEFTERAM PIVOXIL
     Dosage: 200MG PER DAY
     Route: 048
     Dates: start: 20060524, end: 20060524
  5. GASTER [Suspect]
     Active Substance: FAMOTIDINE
     Dosage: 240 MG, QD
     Route: 048
     Dates: start: 20060524, end: 20060524
  6. TRANSAMIN [Suspect]
     Active Substance: TRANEXAMIC ACID
     Dosage: 1000 MG, QD
     Route: 048
  7. EBASTEL [Suspect]
     Active Substance: EBASTINE
     Dosage: 60MG PER DAY
     Route: 048
     Dates: start: 20060524, end: 20060524
  8. PURSENNID?IN [Suspect]
     Active Substance: SENNA LEAF
     Dosage: 30 UNK, QD
     Route: 048
     Dates: start: 20060524, end: 20060524
  9. ALLEGRA [Suspect]
     Active Substance: FEXOFENADINE HYDROCHLORIDE
     Dosage: 720 MG, QD
     Route: 048
     Dates: start: 20060524, end: 20060524
  10. THIATON [Suspect]
     Active Substance: TIQUIZIUM BROMIDE
     Dosage: 50MG PER DAY
     Route: 048
     Dates: start: 20060524, end: 20060524
  11. LASIX [Suspect]
     Active Substance: FUROSEMIDE
     Dosage: 4 UNK, QD
     Route: 048
     Dates: start: 20060524, end: 20060524
  12. FOSFOMYCIN CALCIUM [Suspect]
     Active Substance: FOSFOMYCIN CALCIUM
     Dosage: 1500MG PER DAY
     Route: 048
     Dates: start: 20060524, end: 20060524
  13. DASEN [Suspect]
     Active Substance: SERRAPEPTASE
     Dosage: 105 MG, QD
     Route: 048
     Dates: start: 20060524, end: 20060524
  14. GASMOTIN [Suspect]
     Active Substance: MOSAPRIDE CITRATE
     Dosage: 12U PER DAY
     Route: 048
     Dates: start: 20060524, end: 20060524
  15. ADONA (AC?17) [Suspect]
     Active Substance: CARBAZOCHROME SODIUM SULFONATE
     Dosage: 90MG PER DAY
     Route: 048
     Dates: start: 20060524, end: 20060524

REACTIONS (4)
  - Intentional overdose [Unknown]
  - Nausea [Recovered/Resolved]
  - Altered state of consciousness [Recovered/Resolved]
  - Toxicity to various agents [Recovered/Resolved]
